FAERS Safety Report 20448941 (Version 1)
Quarter: 2022Q1

REPORT INFORMATION
  Report Type: Spontaneous
  Country: FR (occurrence: FR)
  Receive Date: 20220209
  Receipt Date: 20220209
  Transmission Date: 20220423
  Serious: Yes (Hospitalization)
  Sender: FDA-Public Use
  Company Number: None

PATIENT
  Age: 75 Year
  Sex: Male
  Weight: 112 kg

DRUGS (7)
  1. VORICONAZOLE [Suspect]
     Active Substance: VORICONAZOLE
     Indication: Aspergillus infection
     Dosage: 468 MG, DAILY
     Route: 042
     Dates: start: 20220119
  2. MEROPENEM [Suspect]
     Active Substance: MEROPENEM
     Indication: Enterobacter sepsis
     Dosage: 6 G, DAILY
     Route: 042
     Dates: start: 20220120
  3. CEFAZOLIN [Suspect]
     Active Substance: CEFAZOLIN
     Indication: Enterobacter sepsis
     Dosage: 6 G 1X/DAY
     Route: 042
     Dates: start: 20220117, end: 20220120
  4. ERYTHROMYCIN [Suspect]
     Active Substance: ERYTHROMYCIN
     Indication: Superinfection
     Dosage: 100 MG, 1X/DAY
     Route: 042
     Dates: start: 20220114
  5. SOTALOL [Concomitant]
     Active Substance: SOTALOL
     Dosage: UNK
  6. ESOMEPRAZOLE MAGNESIUM [Concomitant]
     Active Substance: ESOMEPRAZOLE MAGNESIUM
     Dosage: UNK
  7. XARELTO [Concomitant]
     Active Substance: RIVAROXABAN
     Dosage: UNK

REACTIONS (1)
  - Toxic skin eruption [Not Recovered/Not Resolved]

NARRATIVE: CASE EVENT DATE: 20220120
